FAERS Safety Report 5171176-6 (Version None)
Quarter: 2006Q4

REPORT INFORMATION
  Report Type: 
  Country: None (occurrence: None)
  Receive Date: 20061208
  Receipt Date: 20061208
  Transmission Date: 20070319
  Serious: No
  Sender: FDA-Public Use
  Company Number: None

PATIENT
  Age: 54 Year
  Sex: Male
  Weight: 92.9874 kg

DRUGS (3)
  1. OXYCODONE HCL [Suspect]
     Indication: INTERVERTEBRAL DISC DISORDER
     Dosage: 2 X 80MG  Q12HRS. PO
     Route: 048
  2. OXYCODONE HCL [Suspect]
     Indication: INTERVERTEBRAL DISC PROTRUSION
     Dosage: 2 X 80MG  Q12HRS. PO
     Route: 048
  3. OXYCODONE HCL [Suspect]
     Indication: SCIATICA
     Dosage: 2 X 80MG  Q12HRS. PO
     Route: 048

REACTIONS (1)
  - THERAPEUTIC RESPONSE UNEXPECTED WITH DRUG SUBSTITUTION [None]
